FAERS Safety Report 10231093 (Version 2)
Quarter: 2014Q2

REPORT INFORMATION
  Report Type: Report from Study
  Country: US (occurrence: US)
  Receive Date: 20140611
  Receipt Date: 20140611
  Transmission Date: 20141212
  Serious: Yes (Other)
  Sender: FDA-Public Use
  Company Number: US-BRISTOL-MYERS SQUIBB COMPANY-15241375

PATIENT
  Age: 56 Year
  Sex: Male

DRUGS (11)
  1. IPILIMUMAB [Suspect]
     Indication: MALIGNANT MELANOMA
     Route: 042
     Dates: start: 20080722, end: 20100525
  2. ACETAMINOPHEN + HYDROCODONE [Concomitant]
     Dosage: 10MG-500MG ORAL TABS;3-4 TIMES/DAY
     Route: 048
     Dates: start: 20080811
  3. CLONAZEPAM [Concomitant]
     Dosage: AS NECESSARY
     Route: 048
     Dates: start: 20100307
  4. VALIUM [Concomitant]
     Dosage: 3 TABS BY MOUTH
     Route: 048
     Dates: start: 2008
  5. TRILIPIX [Concomitant]
     Dosage: 135MG DELAYED RELAPSE CAPS;1CAPS/D
     Route: 048
     Dates: start: 20090921
  6. GABAPENTIN [Concomitant]
     Dosage: 2 CAPS 3/D;300MG ORAL CAPS
     Route: 048
     Dates: start: 20080902
  7. HYDROCORTISONE [Concomitant]
     Dosage: 1DF-1 TAB; 10MG ORAL TAB
     Route: 047
     Dates: start: 20100315
  8. SYNTHROID [Concomitant]
     Route: 048
     Dates: start: 20100115
  9. TESTOSTERONE ENANTHATE [Concomitant]
     Dosage: 200MG/ML SOLN
     Route: 030
     Dates: start: 20100309
  10. PREVACID [Concomitant]
     Dosage: 30MG ORAL ENTERIC COATED CAPS;1 CAPS BY MOUTH DAILY
     Route: 048
     Dates: start: 20081118
  11. COMPAZINE [Concomitant]
     Indication: NAUSEA
     Dates: start: 20100401

REACTIONS (2)
  - Neutrophil count decreased [Recovered/Resolved with Sequelae]
  - Platelet count decreased [Recovered/Resolved with Sequelae]
